FAERS Safety Report 13109048 (Version 3)
Quarter: 2017Q1

REPORT INFORMATION
  Report Type: Spontaneous
  Country: PR (occurrence: PR)
  Receive Date: 20170112
  Receipt Date: 20170228
  Transmission Date: 20170428
  Serious: Yes (Other)
  Sender: FDA-Public Use
  Company Number: PR-PFIZER INC-2017011153

PATIENT
  Age: 19 Year
  Sex: Male

DRUGS (3)
  1. REVATIO [Suspect]
     Active Substance: SILDENAFIL CITRATE
     Indication: BONE DISORDER
  2. REVATIO [Suspect]
     Active Substance: SILDENAFIL CITRATE
     Indication: POOR PERIPHERAL CIRCULATION
     Dosage: 20 MG, 1X/DAY
     Dates: start: 2010
  3. PEPCID [Concomitant]
     Active Substance: FAMOTIDINE
     Indication: GASTRIC DISORDER
     Dosage: 20 MG, 1X/DAY, AT NIGHT

REACTIONS (4)
  - Blindness unilateral [Unknown]
  - Product use issue [Not Recovered/Not Resolved]
  - Accident at work [Unknown]
  - Intraocular pressure increased [Unknown]

NARRATIVE: CASE EVENT DATE: 2010
